FAERS Safety Report 7458605-X (Version None)
Quarter: 2011Q2

REPORT INFORMATION
  Report Type: 
  Country: None (occurrence: None)
  Receive Date: 20110503
  Receipt Date: 20110503
  Transmission Date: 20111010
  Serious: Yes (Other)
  Sender: FDA-Public Use
  Company Number: None

PATIENT
  Sex: Female
  Weight: 63.5036 kg

DRUGS (2)
  1. HYDROCODONE BITARTRATE + ACETAMINOPHEN [Suspect]
     Indication: ENDODONTIC PROCEDURE
     Dosage: 1 OR 2 TABLETS 4-6 HRS PO
     Route: 048
     Dates: start: 20110428, end: 20110428
  2. HYDROCODONE BITARTRATE + ACETAMINOPHEN [Suspect]
     Indication: ANALGESIC THERAPY
     Dosage: 1 OR 2 TABLETS 4-6 HRS PO
     Route: 048
     Dates: start: 20110428, end: 20110428

REACTIONS (6)
  - DEPRESSION [None]
  - CRYING [None]
  - EAR PAIN [None]
  - TOOTHACHE [None]
  - SWELLING FACE [None]
  - DELIRIUM [None]
